FAERS Safety Report 8267821-9 (Version None)
Quarter: 2012Q2

REPORT INFORMATION
  Report Type: 
  Country: None (occurrence: None)
  Receive Date: 20120409
  Receipt Date: 20120329
  Transmission Date: 20120825
  Serious: Yes (Other)
  Sender: FDA-Public Use
  Company Number: US-ASTRAZENECA-2012SE21541

PATIENT
  Age: 67 Year
  Sex: Male

DRUGS (2)
  1. CYTOTEC [Concomitant]
  2. NEXIUM [Suspect]
     Route: 048

REACTIONS (1)
  - GAIT DISTURBANCE [None]
